FAERS Safety Report 26054038 (Version 1)
Quarter: 2025Q4

REPORT INFORMATION
  Report Type: Spontaneous
  Country: CH (occurrence: CH)
  Receive Date: 20251117
  Receipt Date: 20251117
  Transmission Date: 20260118
  Serious: Yes (Hospitalization)
  Sender: PFIZER
  Company Number: None

PATIENT
  Age: 58 Year
  Sex: Female
  Weight: 43.3 kg

DRUGS (20)
  1. DIFLUCAN [Interacting]
     Active Substance: FLUCONAZOLE
     Indication: Oral candidiasis
     Dosage: 100 MG
     Dates: start: 20250829, end: 20250829
  2. DIFLUCAN [Interacting]
     Active Substance: FLUCONAZOLE
     Dosage: 50 MG, DAILY, FOR AT LEAST 7 DAYS
     Dates: start: 20250830, end: 20250910
  3. DIFLUCAN [Interacting]
     Active Substance: FLUCONAZOLE
     Dosage: 100 MG
     Dates: start: 20250911, end: 20250911
  4. PROGRAF [Interacting]
     Active Substance: TACROLIMUS
     Indication: Lung transplant
     Dosage: 4MG-0-4.5 MG, 4MG-0-4.5 MG
     Dates: end: 20250901
  5. PROGRAF [Interacting]
     Active Substance: TACROLIMUS
     Dosage: 7 MG, DAILY, 3MG-0-4MG
     Dates: start: 20250902, end: 20250910
  6. PROGRAF [Interacting]
     Active Substance: TACROLIMUS
     Dosage: 2 MG
     Dates: start: 20250911, end: 20250912
  7. PROGRAF [Interacting]
     Active Substance: TACROLIMUS
     Dosage: 2 MG, 3X/DAY
     Dates: start: 20250913
  8. CALCIMAGON [CALCIUM] [Concomitant]
     Dosage: UNK
     Route: 048
  9. ATOVAQUONE [Concomitant]
     Active Substance: ATOVAQUONE
     Dosage: UNK
     Route: 048
  10. CYCLOSPORINE [Concomitant]
     Active Substance: CYCLOSPORINE
     Dosage: UNK
     Route: 047
  11. PALLADONE [Concomitant]
     Active Substance: HYDROMORPHONE HYDROCHLORIDE
     Dosage: UNK
     Route: 048
  12. NEURODOL [LIDOCAINE] [Concomitant]
     Dosage: UNK
     Route: 061
  13. IMODIUM [Concomitant]
     Active Substance: LOPERAMIDE HYDROCHLORIDE
     Dosage: UNK
     Route: 060
  14. MAGNESIUM DIASPORAL [MAGNESIUM CITRATE] [Concomitant]
     Dosage: UNK
     Route: 048
  15. METOPROLOL SUCCINATE [Concomitant]
     Active Substance: METOPROLOL SUCCINATE
     Dosage: UNK
     Route: 048
  16. MYFORTIC [Concomitant]
     Active Substance: MYCOPHENOLATE SODIUM
     Dosage: UNK
  17. MIRCERA [Concomitant]
     Active Substance: METHOXY POLYETHYLENE GLYCOL-EPOETIN BETA
     Dosage: UNK
  18. PREDNISOLONE [Concomitant]
     Active Substance: PREDNISOLONE
     Dosage: UNK
  19. PRUCALOPRIDE SUCCINATE [Concomitant]
     Active Substance: PRUCALOPRIDE SUCCINATE
     Dosage: UNK
  20. PANTOPRAZOLE SODIUM [Concomitant]
     Active Substance: PANTOPRAZOLE SODIUM
     Dosage: UNK

REACTIONS (3)
  - Drug interaction [Recovering/Resolving]
  - Immunosuppressant drug level increased [Recovering/Resolving]
  - Acute kidney injury [Recovering/Resolving]

NARRATIVE: CASE EVENT DATE: 20250901
